FAERS Safety Report 21203472 (Version 2)
Quarter: 2022Q3

REPORT INFORMATION
  Report Type: Spontaneous
  Country: US (occurrence: US)
  Receive Date: 20220811
  Receipt Date: 20220826
  Transmission Date: 20221027
  Serious: Yes (Hospitalization, Other)
  Sender: FDA-Public Use
  Company Number: US-TEVA-2022-US-2062798

PATIENT
  Age: 32 Year
  Sex: Male

DRUGS (13)
  1. DEXAMETHASONE [Suspect]
     Active Substance: DEXAMETHASONE
     Indication: Cancer pain
     Route: 042
  2. FENTANYL CITRATE [Suspect]
     Active Substance: FENTANYL CITRATE
     Indication: Cancer pain
     Dosage: 650 MCG/H CONTINUOUS INFUSION AND A 200 MCG DEMAND DOSE WITH A 10-MINUTE LOCKOUT
     Route: 050
  3. FENTANYL CITRATE [Suspect]
     Active Substance: FENTANYL CITRATE
     Indication: Cancer pain
     Route: 050
  4. FENTANYL CITRATE [Suspect]
     Active Substance: FENTANYL CITRATE
     Indication: Cancer pain
     Dosage: OVER THE PRECEDING DAYS
     Route: 050
  5. FENTANYL CITRATE [Suspect]
     Active Substance: FENTANYL CITRATE
     Indication: Cancer pain
     Dosage: IN THE 24 HOURS
     Route: 050
  6. HALOPERIDOL [Suspect]
     Active Substance: HALOPERIDOL
     Indication: Cancer pain
     Route: 065
  7. HALOPERIDOL [Suspect]
     Active Substance: HALOPERIDOL
     Indication: Encephalopathy
  8. HYDROMORPHONE HYDROCHLORIDE [Suspect]
     Active Substance: HYDROMORPHONE HYDROCHLORIDE
     Indication: Cancer pain
     Route: 042
  9. LORAZEPAM [Suspect]
     Active Substance: LORAZEPAM
     Indication: Cancer pain
     Route: 060
  10. LORAZEPAM [Suspect]
     Active Substance: LORAZEPAM
     Indication: Encephalopathy
  11. KETAMINE HYDROCHLORIDE [Suspect]
     Active Substance: KETAMINE HYDROCHLORIDE
     Indication: Cancer pain
     Route: 040
  12. KETAMINE HYDROCHLORIDE [Suspect]
     Active Substance: KETAMINE HYDROCHLORIDE
     Dosage: INFUSION AT 0.1 MG/KG/H
     Route: 050
  13. KETAMINE HYDROCHLORIDE [Suspect]
     Active Substance: KETAMINE HYDROCHLORIDE
     Dosage: 0.2 MG/KG/H
     Route: 050

REACTIONS (4)
  - Encephalopathy [Unknown]
  - Neurotoxicity [Unknown]
  - Hallucination [Unknown]
  - Drug ineffective [Unknown]
